FAERS Safety Report 9219801 (Version 1)
Quarter: 2013Q2

REPORT INFORMATION
  Report Type: Spontaneous
  Country: US (occurrence: None)
  Receive Date: 20130408
  Receipt Date: 20130408
  Transmission Date: 20140414
  Serious: Yes (Hospitalization)
  Sender: FDA-Public Use
  Company Number: None

PATIENT
  Age: 65 Year
  Sex: Male
  Weight: 70 kg

DRUGS (2)
  1. ISONIAZID [Suspect]
     Indication: TUBERCULOSIS
     Dosage: 300 MG  AM  PO?~06/07/2012 THRU ~01/15/2012
     Route: 048
     Dates: start: 20120607
  2. PYRIDOXINE [Suspect]
     Dosage: 50 MG  EVERY DAY  PO?
     Route: 048
     Dates: start: 20120607

REACTIONS (2)
  - Hepatotoxicity [None]
  - Hepatic enzyme increased [None]
